FAERS Safety Report 10562784 (Version 1)
Quarter: 2014Q4

REPORT INFORMATION
  Report Type: Spontaneous
  Country: US (occurrence: US)
  Receive Date: 20141104
  Receipt Date: 20141104
  Transmission Date: 20150529
  Serious: No
  Sender: FDA-Public Use
  Company Number: US-PFIZER INC-2014300231

PATIENT
  Age: 73 Year
  Sex: Male

DRUGS (2)
  1. SUTENT [Suspect]
     Active Substance: SUNITINIB MALATE
     Dosage: 37 MG, CYCLIC (DAILY, 2 WEEKS ON AND 1 WEEK OFF)
  2. SUTENT [Suspect]
     Active Substance: SUNITINIB MALATE
     Indication: NEOPLASM MALIGNANT
     Dosage: 50 MG, CYCLIC (DAILY, 28 DAYS ON AND 14 DAYS OFF)

REACTIONS (14)
  - Device occlusion [Unknown]
  - Platelet count decreased [Unknown]
  - Nausea [Unknown]
  - Pyrexia [Unknown]
  - Disease progression [Unknown]
  - Drug intolerance [Unknown]
  - Dehydration [Unknown]
  - Electrolyte imbalance [Unknown]
  - Chills [Unknown]
  - Decreased appetite [Unknown]
  - Neoplasm malignant [Unknown]
  - Pleural effusion [Unknown]
  - Feeling cold [Unknown]
  - Ageusia [Unknown]
